FAERS Safety Report 8092544-9 (Version None)
Quarter: 2012Q1

REPORT INFORMATION
  Report Type: 
  Country: None (occurrence: None)
  Receive Date: 20120128
  Receipt Date: 20110829
  Transmission Date: 20120608
  Serious: No
  Sender: FDA-Public Use
  Company Number: US-ABBOTT-11P-163-0849969-00

PATIENT
  Sex: Female

DRUGS (7)
  1. HUMIRA [Suspect]
     Dates: start: 20110801
  2. SULFASALAZINE [Concomitant]
     Indication: PSORIATIC ARTHROPATHY
  3. MULTI-VITAMINS [Concomitant]
     Indication: VITAMIN SUPPLEMENTATION
  4. ZOLOFT [Concomitant]
     Indication: DEPRESSION
  5. NEXIUM [Concomitant]
     Indication: GASTROOESOPHAGEAL REFLUX DISEASE
  6. ZOLOFT [Concomitant]
     Indication: ANXIETY
  7. HUMIRA [Suspect]
     Indication: PSORIATIC ARTHROPATHY
     Dates: end: 20110201

REACTIONS (3)
  - PAIN [None]
  - INFLAMMATION [None]
  - DRUG INEFFECTIVE [None]
